FAERS Safety Report 9377130 (Version 1)
Quarter: 2013Q3

REPORT INFORMATION
  Report Type: Spontaneous
  Country: FR (occurrence: FR)
  Receive Date: 20130701
  Receipt Date: 20130701
  Transmission Date: 20140515
  Serious: Yes (Hospitalization, Other)
  Sender: FDA-Public Use
  Company Number: FR-009507513-1306FRA011789

PATIENT
  Age: 72 Year
  Sex: Female

DRUGS (8)
  1. FOSAVANCE [Suspect]
     Dosage: UNK
     Route: 048
     Dates: start: 2006
  2. DETENSIEL [Suspect]
     Dosage: UNK
     Route: 048
     Dates: start: 2003
  3. NISISCO [Suspect]
     Dosage: UNK
     Route: 048
     Dates: start: 2003
  4. SERC (BETAHISTINE HYDROCHLORIDE) [Suspect]
     Dosage: UNK
     Route: 048
     Dates: start: 2001
  5. ENDOTELON [Suspect]
     Dosage: UNK
     Route: 048
     Dates: start: 2000
  6. FEMARA [Suspect]
     Dosage: UNK
     Route: 048
     Dates: start: 2006
  7. CHONDROSULF [Suspect]
     Dosage: UNK
     Route: 048
     Dates: start: 2006
  8. KESTINE [Suspect]
     Dosage: UNK
     Dates: start: 20070418

REACTIONS (1)
  - Drug reaction with eosinophilia and systemic symptoms [Unknown]
